FAERS Safety Report 16108156 (Version 2)
Quarter: 2019Q3

REPORT INFORMATION
  Report Type: Spontaneous
  Country: US (occurrence: US)
  Receive Date: 20190322
  Receipt Date: 20190923
  Transmission Date: 20191004
  Serious: Yes (Other)
  Sender: FDA-Public Use
  Company Number: US-MYLANLABS-2019M1023498

PATIENT
  Sex: Male
  Weight: 83 kg

DRUGS (1)
  1. PERPHENAZINE AND AMITRIPTYLINE HYDROCHLORIDE TABLETS, USP [Suspect]
     Active Substance: PERPHENAZINE
     Indication: PSYCHOMOTOR HYPERACTIVITY
     Dosage: UNK
     Route: 048

REACTIONS (5)
  - Withdrawal syndrome [Recovered/Resolved]
  - Myocardial infarction [Recovered/Resolved]
  - Abdominal discomfort [Recovered/Resolved]
  - Drug dependence [Not Recovered/Not Resolved]
  - Irritability [Recovered/Resolved]
